FAERS Safety Report 16845409 (Version 1)
Quarter: 2019Q4

REPORT INFORMATION
  Report Type: Spontaneous
  Country: US (occurrence: US)
  Receive Date: 20190924
  Receipt Date: 20190924
  Transmission Date: 20200122
  Serious: Yes (Other)
  Sender: FDA-Public Use
  Company Number: None

PATIENT
  Age: 65 Year
  Sex: Female
  Weight: 78.75 kg

DRUGS (10)
  1. D2 20 MCG [Concomitant]
  2. CALCIUM 600MG [Concomitant]
  3. IBRUPROFEN [Concomitant]
     Active Substance: IBUPROFEN
  4. AZITHROMYCIN ANHYDROUS. [Suspect]
     Active Substance: AZITHROMYCIN ANHYDROUS
     Indication: PHARYNGITIS STREPTOCOCCAL
     Dosage: ?          QUANTITY:1 TABLET(S);?
     Route: 048
     Dates: start: 20190513, end: 20190517
  5. ONE-A DAY WOMEN^S MULTIVITAMINS [Concomitant]
  6. LIDOCAINE OINTMENT [Concomitant]
     Active Substance: LIDOCAINE
  7. FISH OIL [Concomitant]
     Active Substance: FISH OIL
  8. TURMERIC [Concomitant]
     Active Substance: HERBALS\TURMERIC
  9. TYLENOL [Concomitant]
     Active Substance: ACETAMINOPHEN
  10. DICL/GABA/BACL/DOXE 2%6%2%5% CRE 120 GMS - TOPICAL COMPOUND [Concomitant]

REACTIONS (2)
  - Neck pain [None]
  - Condition aggravated [None]

NARRATIVE: CASE EVENT DATE: 20190517
